FAERS Safety Report 4427783-9 (Version None)
Quarter: 2004Q3

REPORT INFORMATION
  Report Type: 
  Country: None (occurrence: None)
  Receive Date: 20040816
  Receipt Date: 20040816
  Transmission Date: 20050211
  Serious: Yes (Life-Threatening, Disabling)
  Sender: FDA-Public Use
  Company Number: None

PATIENT
  Age: 59 Year
  Sex: Female
  Weight: 72.5755 kg

DRUGS (2)
  1. TAPAZOLE [Suspect]
     Indication: HYPERTHYROIDISM
     Dosage: 3 X DAY
     Dates: start: 20011023, end: 20011025
  2. PROPRANOLOL [Suspect]
     Indication: HYPERTHYROIDISM
     Dosage: 3 X DAY
     Dates: start: 20011023, end: 20011218

REACTIONS (5)
  - BEDRIDDEN [None]
  - BURNING SENSATION [None]
  - FEELING ABNORMAL [None]
  - HEADACHE [None]
  - PALPITATIONS [None]
